FAERS Safety Report 4327959-5 (Version None)
Quarter: 2004Q1

REPORT INFORMATION
  Report Type: 
  Country: None (occurrence: None)
  Receive Date: 20040325
  Receipt Date: 20040315
  Transmission Date: 20041129
  Serious: Yes (Other)
  Sender: FDA-Public Use
  Company Number: 2003173161PT

PATIENT
  Age: 66 Year
  Sex: Female
  Weight: 77 kg

DRUGS (3)
  1. CELEBREX [Suspect]
     Indication: BACK DISORDER
     Dosage: 200 MG, QD, ORAL
     Route: 048
     Dates: start: 20030724, end: 20030727
  2. ACETAMINOPHEN [Concomitant]
  3. CHOLRAPHENICOL [Concomitant]

REACTIONS (5)
  - LACRIMAL DISORDER [None]
  - MALAISE [None]
  - PERIORBITAL OEDEMA [None]
  - STOMATITIS [None]
  - TREMOR [None]
